FAERS Safety Report 6161093-7 (Version None)
Quarter: 2009Q2

REPORT INFORMATION
  Report Type: 
  Country: None (occurrence: None)
  Receive Date: 20090421
  Receipt Date: 20090408
  Transmission Date: 20091009
  Serious: Yes (Death, Hospitalization)
  Sender: FDA-Public Use
  Company Number: CA-SANOFI-SYNTHELABO-D01200805244

PATIENT
  Sex: Female
  Weight: 82 kg

DRUGS (7)
  1. LASIX [Concomitant]
  2. DILTIAZEM [Concomitant]
  3. LANOXIN [Concomitant]
  4. NITRO-DUR [Concomitant]
  5. ASPIRIN [Concomitant]
     Indication: ATRIAL FIBRILLATION
     Dosage: 80 MG
     Route: 048
     Dates: start: 20041027
  6. IRBESARTAN [Suspect]
     Indication: ATRIAL FIBRILLATION
     Dosage: 150 MG/DAY FOR 2 WEEKS FOLLOWING BY 300 MG/DAY
     Route: 048
     Dates: start: 20041027
  7. CLOPIDOGREL [Suspect]
     Indication: ATRIAL FIBRILLATION
     Route: 048
     Dates: start: 20041027

REACTIONS (3)
  - ANAEMIA [None]
  - COLON CANCER [None]
  - VOMITING [None]
